FAERS Safety Report 16061546 (Version 1)
Quarter: 2019Q2

REPORT INFORMATION
  Report Type: Spontaneous
  Country: PR (occurrence: PR)
  Receive Date: 20190312
  Receipt Date: 20190312
  Transmission Date: 20190711
  Serious: Yes (Other)
  Sender: FDA-Public Use
  Company Number: None

PATIENT
  Age: 60 Year
  Sex: Female
  Weight: 112.95 kg

DRUGS (1)
  1. LACTULOSE. [Suspect]
     Active Substance: LACTULOSE
     Indication: CONSTIPATION
     Dosage: ?          QUANTITY:1 10GM/15 SOLUTION;?
     Route: 048
     Dates: start: 20190304, end: 20190310

REACTIONS (3)
  - Dysphagia [None]
  - Lip swelling [None]
  - Mouth swelling [None]

NARRATIVE: CASE EVENT DATE: 20190310
